FAERS Safety Report 8435493-6 (Version None)
Quarter: 2012Q2

REPORT INFORMATION
  Report Type: 
  Country: None (occurrence: None)
  Receive Date: 20120614
  Receipt Date: 20120601
  Transmission Date: 20120825
  Serious: Yes (Other)
  Sender: FDA-Public Use
  Company Number: US-BAYER-2012-024315

PATIENT
  Age: 48 Year
  Sex: Female

DRUGS (8)
  1. MOBIC [Concomitant]
  2. MORPHINE [Concomitant]
     Indication: DISCOMFORT
     Route: 040
  3. PHENERGAN [Concomitant]
     Indication: NAUSEA
     Dosage: 12.5 MG, UNK
     Route: 040
  4. PREVACID [Concomitant]
  5. ANTACIDS, OTHER COMBINATIONS [Concomitant]
  6. YAZ [Suspect]
     Dosage: UNK
     Dates: start: 20080601, end: 20081201
  7. YASMIN [Suspect]
     Dosage: UNK
     Dates: start: 20080601, end: 20081201
  8. MAGNESIUM HYDROXIDE TAB [Concomitant]
     Dosage: IF PAIN BEGINS TO WORSEN

REACTIONS (7)
  - INJURY [None]
  - ANXIETY [None]
  - EMOTIONAL DISTRESS [None]
  - PAIN [None]
  - GENERAL PHYSICAL HEALTH DETERIORATION [None]
  - DEEP VEIN THROMBOSIS [None]
  - ANHEDONIA [None]
